FAERS Safety Report 14884144 (Version 2)
Quarter: 2018Q2

REPORT INFORMATION
  Report Type: Report from Study
  Country: CN (occurrence: CN)
  Receive Date: 20180511
  Receipt Date: 20180601
  Transmission Date: 20180711
  Serious: Yes (Other)
  Sender: FDA-Public Use
  Company Number: CN-ASTRAZENECA-2018SE62469

PATIENT
  Sex: Female

DRUGS (1)
  1. BYETTA [Suspect]
     Active Substance: EXENATIDE
     Indication: DIABETES MELLITUS
     Route: 058

REACTIONS (4)
  - Dizziness [Unknown]
  - Nausea [Unknown]
  - Chest discomfort [Unknown]
  - Shock [Unknown]
